FAERS Safety Report 14539810 (Version 1)
Quarter: 2018Q1

REPORT INFORMATION
  Report Type: Spontaneous
  Country: US (occurrence: US)
  Receive Date: 20180215
  Receipt Date: 20180215
  Transmission Date: 20180509
  Serious: Yes (Death)
  Sender: FDA-Public Use
  Company Number: None

PATIENT
  Age: 54 Year

DRUGS (2)
  1. XARELTO [Suspect]
     Active Substance: RIVAROXABAN
     Indication: PULMONARY EMBOLISM
     Route: 048
  2. ASPIRIN. [Concomitant]
     Active Substance: ASPIRIN

REACTIONS (6)
  - Haemoptysis [None]
  - Hypotension [None]
  - Respiratory failure [None]
  - Cardio-respiratory arrest [None]
  - Tachypnoea [None]
  - Haemorrhage [None]

NARRATIVE: CASE EVENT DATE: 20170717
